FAERS Safety Report 7206631-8 (Version None)
Quarter: 2011Q1

REPORT INFORMATION
  Report Type: 
  Country: None (occurrence: None)
  Receive Date: 20110103
  Receipt Date: 20101227
  Transmission Date: 20110831
  Serious: Yes (Other)
  Sender: FDA-Public Use
  Company Number: IT-JNJFOC-20101208510

PATIENT
  Age: 58 Year
  Sex: Male

DRUGS (3)
  1. AKINETON [Suspect]
     Indication: ILL-DEFINED DISORDER
     Dosage: 4MG TABLETS
     Route: 048
  2. HALDOL [Suspect]
     Indication: ILL-DEFINED DISORDER
     Dosage: 1 MG TABLETS
     Route: 048
  3. ESILGAN [Suspect]
     Indication: ILL-DEFINED DISORDER
     Dosage: 2 MG TABLETS
     Route: 048

REACTIONS (2)
  - SLUGGISHNESS [None]
  - SELF INJURIOUS BEHAVIOUR [None]
